FAERS Safety Report 5177118-1 (Version None)
Quarter: 2006Q4

REPORT INFORMATION
  Report Type: 
  Country: None (occurrence: None)
  Receive Date: 20061207
  Receipt Date: 20061204
  Transmission Date: 20070319
  Serious: Yes (Disabling)
  Sender: FDA-Public Use
  Company Number: 231854

PATIENT
  Age: 45 Year
  Sex: Male
  Weight: 100 kg

DRUGS (1)
  1. OMALIZUMAB(OMALIZUMAB)PWDR + SOLVENT, INJECTION SOLN, 150 MG [Suspect]
     Indication: ASTHMA
     Dosage: 150  MG, Q2W, SUBCUTANEOUS
     Route: 058
     Dates: start: 20031123, end: 20051219

REACTIONS (3)
  - BURSITIS [None]
  - EXOSTOSIS [None]
  - INJECTION SITE NODULE [None]
